FAERS Safety Report 7461836-6 (Version None)
Quarter: 2011Q2

REPORT INFORMATION
  Report Type: 
  Country: None (occurrence: None)
  Receive Date: 20110506
  Receipt Date: 20110316
  Transmission Date: 20111010
  Serious: No
  Sender: FDA-Public Use
  Company Number: US-BAYER-2011-023793

PATIENT
  Age: 29 Year
  Sex: Female

DRUGS (1)
  1. NATAZIA [Suspect]
     Indication: CONTRACEPTION
     Dosage: UNK
     Dates: start: 20110219

REACTIONS (2)
  - MENSTRUATION DELAYED [None]
  - VAGINAL HAEMORRHAGE [None]
